FAERS Safety Report 24741790 (Version 1)
Quarter: 2024Q4

REPORT INFORMATION
  Report Type: Spontaneous
  Country: US (occurrence: None)
  Receive Date: 20241213
  Receipt Date: 20241213
  Transmission Date: 20250114
  Serious: Yes (Disabling)
  Sender: Public
  Company Number: None

PATIENT
  Age: 20 Year
  Sex: Female
  Weight: 49.9 kg

DRUGS (12)
  1. MIRENA [Suspect]
     Active Substance: LEVONORGESTREL
  2. TESTOSTERONE [Concomitant]
     Active Substance: TESTOSTERONE
  3. Cyplonate [Concomitant]
  4. ADDERALL [Concomitant]
     Active Substance: AMPHETAMINE ASPARTATE\AMPHETAMINE SULFATE\DEXTROAMPHETAMINE SACCHARATE\DEXTROAMPHETAMINE SULFATE
  5. ABILIFY [Concomitant]
     Active Substance: ARIPIPRAZOLE
  6. KLONOPIN [Concomitant]
     Active Substance: CLONAZEPAM
  7. TYLENOL [Concomitant]
     Active Substance: ACETAMINOPHEN
  8. COD LIVER OIL [Concomitant]
     Active Substance: COD LIVER OIL
  9. VITAMIN D3 [Concomitant]
     Active Substance: CHOLECALCIFEROL
  10. VITAMINS [Concomitant]
     Active Substance: VITAMINS
  11. AMPHOTERICIN B [Concomitant]
     Active Substance: AMPHOTERICIN B
  12. glutahione [Concomitant]

REACTIONS (12)
  - Weight increased [None]
  - Fluid retention [None]
  - Vaginal haemorrhage [None]
  - Breast enlargement [None]
  - Menstruation irregular [None]
  - Uterine spasm [None]
  - Uterine cervical pain [None]
  - Back pain [None]
  - Migraine [None]
  - Acne cystic [None]
  - Ovarian cyst [None]
  - Mental disorder [None]

NARRATIVE: CASE EVENT DATE: 20240815
